FAERS Safety Report 18522516 (Version 1)
Quarter: 2020Q4

REPORT INFORMATION
  Report Type: Spontaneous
  Country: US (occurrence: US)
  Receive Date: 20201119
  Receipt Date: 20201119
  Transmission Date: 20210114
  Serious: Yes (Death)
  Sender: FDA-Public Use
  Company Number: None

PATIENT
  Age: 37 Year
  Sex: Male
  Weight: 78.75 kg

DRUGS (4)
  1. MEMANTINE HCL [Concomitant]
     Active Substance: MEMANTINE
  2. KEPPRA [Concomitant]
     Active Substance: LEVETIRACETAM
  3. MEKTOVI [Suspect]
     Active Substance: BINIMETINIB
     Indication: MALIGNANT MELANOMA
     Route: 048
     Dates: start: 20190605, end: 20201119
  4. BRAFTOVI [Suspect]
     Active Substance: ENCORAFENIB
     Indication: MALIGNANT MELANOMA
     Route: 048
     Dates: start: 20190605, end: 20201119

REACTIONS (1)
  - Death [None]

NARRATIVE: CASE EVENT DATE: 20201119
